FAERS Safety Report 15795452 (Version 1)
Quarter: 2019Q1

REPORT INFORMATION
  Report Type: Report from Study
  Country: MX (occurrence: MX)
  Receive Date: 20190107
  Receipt Date: 20190107
  Transmission Date: 20190417
  Serious: Yes (Other)
  Sender: FDA-Public Use
  Company Number: MX-SA-2019SA003326

PATIENT
  Sex: Female

DRUGS (1)
  1. INSULIN GLARGINE [Suspect]
     Active Substance: INSULIN GLARGINE
     Route: 030

REACTIONS (5)
  - Pyrexia [Unknown]
  - Nausea [Unknown]
  - Intentional product misuse [Unknown]
  - Epistaxis [Unknown]
  - Application site pain [Unknown]
